FAERS Safety Report 4943536-7 (Version None)
Quarter: 2006Q1

REPORT INFORMATION
  Report Type: 
  Country: None (occurrence: None)
  Receive Date: 20060309
  Receipt Date: 20060222
  Transmission Date: 20060701
  Serious: Yes (Death, Life-Threatening, Hospitalization, Disabling)
  Sender: FDA-Public Use
  Company Number: 2006000457

PATIENT
  Age: 62 Year
  Sex: Male
  Weight: 71.2147 kg

DRUGS (4)
  1. TARCEVA [Suspect]
     Indication: NON-SMALL CELL LUNG CANCER
     Dosage: 150 MG (QD), ORAL
     Route: 048
     Dates: start: 20051030, end: 20051122
  2. AVASTIN [Suspect]
     Indication: NON-SMALL CELL LUNG CANCER
     Dosage: 1097 MG (ONE DOSE), INTRAVENOUS
     Route: 042
     Dates: start: 20051102, end: 20051102
  3. COREG (CAREDILOL) [Concomitant]
  4. CLINDAMYCIN [Concomitant]

REACTIONS (8)
  - AORTIC DISSECTION [None]
  - EXERCISE TOLERANCE DECREASED [None]
  - FATIGUE [None]
  - HYPERTENSION [None]
  - MALIGNANT NEOPLASM PROGRESSION [None]
  - METASTASES TO LIVER [None]
  - PAIN [None]
  - PLEURAL FIBROSIS [None]
